FAERS Safety Report 25845264 (Version 2)
Quarter: 2025Q3

REPORT INFORMATION
  Report Type: Spontaneous
  Country: US (occurrence: US)
  Receive Date: 20250925
  Receipt Date: 20250930
  Transmission Date: 20251021
  Serious: Yes (Death, Other)
  Sender: VIIV
  Company Number: US-VIIV HEALTHCARE-US2025121019

PATIENT
  Age: 31 Year
  Sex: Male
  Weight: 46.85 kg

DRUGS (5)
  1. CABOTEGRAVIR [Suspect]
     Active Substance: CABOTEGRAVIR
     Indication: HIV infection
  2. CABOTEGRAVIR [Suspect]
     Active Substance: CABOTEGRAVIR
  3. CABOTEGRAVIR [Suspect]
     Active Substance: CABOTEGRAVIR
  4. FOSTEMSAVIR [Suspect]
     Active Substance: FOSTEMSAVIR
     Indication: HIV infection
  5. LENACAPAVIR [Suspect]
     Active Substance: LENACAPAVIR
     Indication: HIV infection

REACTIONS (3)
  - Progressive multifocal leukoencephalopathy [Fatal]
  - Off label use [Unknown]
  - Product use in unapproved therapeutic environment [Unknown]

NARRATIVE: CASE EVENT DATE: 20250201
